FAERS Safety Report 8593542-9 (Version None)
Quarter: 2012Q3

REPORT INFORMATION
  Report Type: 
  Country: None (occurrence: None)
  Receive Date: 20120814
  Receipt Date: 20120719
  Transmission Date: 20120928
  Serious: No
  Sender: FDA-Public Use
  Company Number: US-ASTRAZENECA-2012SE47484

PATIENT
  Age: 28 Year
  Sex: Female
  Weight: 81.6 kg

DRUGS (5)
  1. ATIVAN [Concomitant]
     Indication: ASTHMA
     Route: 048
     Dates: start: 20120607
  2. ATIVAN [Concomitant]
     Indication: ANXIETY
     Route: 048
     Dates: start: 20120607
  3. PULMICORT FLEXHALER [Suspect]
     Indication: ASTHMA EXERCISE INDUCED
     Route: 055
     Dates: start: 20120301
  4. MULTI-VITAMINS [Concomitant]
     Indication: PRENATAL CARE
     Route: 048
     Dates: start: 20120301
  5. SYMBICORT [Suspect]
     Indication: ASTHMA EXERCISE INDUCED
     Dosage: 320 MCG BID
     Route: 055
     Dates: start: 20120601, end: 20120614

REACTIONS (6)
  - SENSATION OF FOREIGN BODY [None]
  - COUGH [None]
  - ANXIETY [None]
  - RESPIRATORY TRACT IRRITATION [None]
  - HEART RATE INCREASED [None]
  - NERVOUSNESS [None]
